FAERS Safety Report 7763873-0 (Version None)
Quarter: 2011Q3

REPORT INFORMATION
  Report Type: 
  Country: None (occurrence: None)
  Receive Date: 20110921
  Receipt Date: 20110907
  Transmission Date: 20111222
  Serious: Yes (Other)
  Sender: FDA-Public Use
  Company Number: JP-BAYER-2011-078161

PATIENT
  Age: 38 Year
  Sex: Female
  Weight: 49 kg

DRUGS (2)
  1. MIGSIS [Concomitant]
     Dosage: DAILY DOSE 2 DF
     Route: 048
     Dates: start: 20081017, end: 20110101
  2. YAZ [Suspect]
     Indication: ENDOMETRIOSIS
     Dosage: DAILY DOSE 1 DF
     Route: 048
     Dates: start: 20110127, end: 20110823

REACTIONS (9)
  - PRINZMETAL ANGINA [None]
  - CHEST PAIN [None]
  - ELECTROCARDIOGRAM ST SEGMENT ELEVATION [None]
  - AMENORRHOEA [None]
  - POLYURIA [None]
  - DEHYDRATION [None]
  - HEADACHE [None]
  - ELECTROCARDIOGRAM ST SEGMENT DEPRESSION [None]
  - DYSMENORRHOEA [None]
